FAERS Safety Report 21349782 (Version 1)
Quarter: 2022Q3

REPORT INFORMATION
  Report Type: Spontaneous
  Country: CA (occurrence: CA)
  Receive Date: 20220919
  Receipt Date: 20220919
  Transmission Date: 20221026
  Serious: Yes (Other)
  Sender: FDA-Public Use
  Company Number: CA-ANIPHARMA-2020-CA-001471

PATIENT
  Age: 46 Year
  Sex: Female

DRUGS (4)
  1. CANDESARTAN CILEXETIL [Suspect]
     Active Substance: CANDESARTAN CILEXETIL
     Indication: Migraine
     Route: 048
     Dates: start: 201805, end: 201806
  2. AIMOVIG [Suspect]
     Active Substance: ERENUMAB-AOOE
     Dosage: 140 MG MONTH
     Route: 058
     Dates: start: 20181215
  3. TOPIRAMATE [Suspect]
     Active Substance: TOPIRAMATE
     Route: 065
     Dates: start: 201305, end: 2014
  4. VERAPAMIL [Suspect]
     Active Substance: VERAPAMIL HYDROCHLORIDE
     Route: 065
     Dates: start: 201610, end: 201804

REACTIONS (4)
  - Drug intolerance [Unknown]
  - Migraine [Unknown]
  - Drug ineffective for unapproved indication [Unknown]
  - Product use in unapproved indication [Unknown]

NARRATIVE: CASE EVENT DATE: 20181201
